FAERS Safety Report 22526543 (Version 1)
Quarter: 2023Q2

REPORT INFORMATION
  Report Type: Report from Study
  Country: RU (occurrence: None)
  Receive Date: 20230606
  Receipt Date: 20230606
  Transmission Date: 20230721
  Serious: Yes (Death, Hospitalization)
  Sender: FDA-Public Use
  Company Number: RU-ROCHE-3218183

PATIENT
  Age: 33 Year
  Sex: Male
  Weight: 50.3 kg

DRUGS (5)
  1. OCRELIZUMAB [Suspect]
     Active Substance: OCRELIZUMAB
     Indication: Relapsing-remitting multiple sclerosis
     Dosage: ON 16-AUG-2022,MOST RECENT DOSE OF STUDY DRUG PRIOR TO AE/SAE WAS GIVEN AND TOTAL VOLUME PRIOR AE/SA
     Route: 042
     Dates: start: 20210907
  2. VALPROIC ACID [Concomitant]
     Active Substance: VALPROIC ACID
     Route: 048
     Dates: start: 2019
  3. DEXAMETHASONE [Concomitant]
     Active Substance: DEXAMETHASONE
     Route: 042
     Dates: start: 20220816, end: 20220816
  4. CHLOROPYRAMINE HYDROCHLORIDE [Concomitant]
     Active Substance: CHLOROPYRAMINE HYDROCHLORIDE
     Route: 030
     Dates: start: 20220816, end: 20220816
  5. ACETAMINOPHEN [Concomitant]
     Active Substance: ACETAMINOPHEN
     Route: 048
     Dates: start: 20220816, end: 20220816

REACTIONS (2)
  - Coronavirus pneumonia [Fatal]
  - Generalised tonic-clonic seizure [Recovered/Resolved]

NARRATIVE: CASE EVENT DATE: 20220901
